FAERS Safety Report 4731065-5 (Version None)
Quarter: 2005Q3

REPORT INFORMATION
  Report Type: 
  Country: None (occurrence: None)
  Receive Date: 20050726
  Receipt Date: 20040716
  Transmission Date: 20060218
  Serious: Yes (Other)
  Sender: FDA-Public Use
  Company Number: 04GER0145

PATIENT
  Age: 73 Year
  Sex: Male

DRUGS (8)
  1. AGGRASTAT [Suspect]
     Indication: ACUTE CORONARY SYNDROME
     Dosage: 7.2 ML/H BOLUS OVER 30 MIN FOLLOWED BY 1.8 ML/H IV INFUSION
     Route: 040
     Dates: start: 20040428, end: 20040428
  2. ACETYLDIGOXIN(ACETYLDIGOXIN) [Concomitant]
  3. ATORVASTATIN CALCIUM [Concomitant]
  4. DANAPAROID SODIUM(DANAPAROID SODIUM) [Concomitant]
  5. HEPARIN [Concomitant]
  6. METOPROLOL SUCCINATE [Concomitant]
  7. NITROGLYCERIN [Concomitant]
  8. PIRITRAMIDE(PIRITRAMIDE) [Concomitant]

REACTIONS (1)
  - THROMBOCYTOPENIA [None]
